FAERS Safety Report 4285088-3 (Version None)
Quarter: 2004Q1

REPORT INFORMATION
  Report Type: 
  Country: None (occurrence: None)
  Receive Date: 20040202
  Receipt Date: 20040122
  Transmission Date: 20041129
  Serious: Yes (Hospitalization)
  Sender: FDA-Public Use
  Company Number: MK200401-0291-1

PATIENT
  Sex: Male

DRUGS (4)
  1. ANAFRANIL [Suspect]
     Dosage: TRANSPLACENTAL
     Route: 062
  2. LARGACTIL [Suspect]
     Dosage: TRANSPLACENTAL
     Route: 062
  3. PROZAC [Suspect]
     Dosage: TRANSPLANCENTAL
     Route: 064
  4. LYSANXIA [Concomitant]

REACTIONS (14)
  - AGITATION NEONATAL [None]
  - CLONUS [None]
  - DEHYDRATION [None]
  - DRUG WITHDRAWAL SYNDROME NEONATAL [None]
  - FEVER NEONATAL [None]
  - FOOD INTOLERANCE [None]
  - HEPATOCELLULAR DAMAGE [None]
  - HYPERAMMONAEMIA [None]
  - MATERNAL DRUGS AFFECTING FOETUS [None]
  - NEONATAL DISORDER [None]
  - NEONATAL TACHYCARDIA [None]
  - SKIN DISCOLOURATION [None]
  - TREMOR NEONATAL [None]
  - WEIGHT DECREASED [None]
